FAERS Safety Report 8937081 (Version 1)
Quarter: 2012Q4

REPORT INFORMATION
  Report Type: 
  Country: US (occurrence: US)
  Receive Date: 20121129
  Receipt Date: 20121129
  Transmission Date: 20130627
  Serious: Yes (Death, Other)
  Sender: FDA-Public Use
  Company Number: US-ASTELLAS-2012US011529

PATIENT
  Sex: Female

DRUGS (2)
  1. TARCEVA [Suspect]
     Indication: LUNG NEOPLASM MALIGNANT
     Dosage: 150 mg, UID/QD
     Route: 048
     Dates: start: 20080716
  2. TARCEVA [Suspect]
     Dosage: 100 mg, qod
     Route: 048
     Dates: start: 200912

REACTIONS (2)
  - Death [Fatal]
  - Metastases to lung [Unknown]
